FAERS Safety Report 4765794-4 (Version None)
Quarter: 2005Q3

REPORT INFORMATION
  Report Type: 
  Country: None (occurrence: None)
  Receive Date: 20050906
  Receipt Date: 20050822
  Transmission Date: 20060218
  Serious: Yes (Death, Other)
  Sender: FDA-Public Use
  Company Number: 2005117995

PATIENT
  Age: 61 Year
  Sex: Male

DRUGS (1)
  1. VIAGRA [Suspect]
     Indication: ILL-DEFINED DISORDER
     Dates: end: 20050801

REACTIONS (10)
  - CARDIAC FAILURE ACUTE [None]
  - CYANOSIS [None]
  - EAR HAEMORRHAGE [None]
  - EPISTAXIS [None]
  - FALL [None]
  - INCORRECT DOSE ADMINISTERED [None]
  - MOUTH HAEMORRHAGE [None]
  - SHOCK [None]
  - SKIN ODOUR ABNORMAL [None]
  - VOMITING [None]
